FAERS Safety Report 8601589-9 (Version None)
Quarter: 2012Q3

REPORT INFORMATION
  Report Type: 
  Country: None (occurrence: None)
  Receive Date: 20120817
  Receipt Date: 20111220
  Transmission Date: 20120928
  Serious: No
  Sender: FDA-Public Use
  Company Number: US-BRISTOL-MYERS SQUIBB COMPANY-16281958

PATIENT
  Age: 61 Year
  Sex: Female
  Weight: 80 kg

DRUGS (5)
  1. MOM [Concomitant]
  2. ASCORBIC ACID [Concomitant]
  3. SPRYCEL [Suspect]
     Indication: CHRONIC MYELOID LEUKAEMIA
     Route: 048
     Dates: start: 20111011, end: 20111011
  4. POTASSIUM [Concomitant]
  5. CALCIUM [Concomitant]

REACTIONS (11)
  - FEELING COLD [None]
  - WEIGHT INCREASED [None]
  - PARAESTHESIA [None]
  - FLUSHING [None]
  - NAUSEA [None]
  - MUSCULOSKELETAL STIFFNESS [None]
  - MUSCULOSKELETAL DISCOMFORT [None]
  - RASH [None]
  - DYSPNOEA [None]
  - FATIGUE [None]
  - COUGH [None]
